FAERS Safety Report 8906928 (Version 2)
Quarter: 2012Q4

REPORT INFORMATION
  Report Type: 
  Country: US (occurrence: US)
  Receive Date: 20121114
  Receipt Date: 20121126
  Transmission Date: 20130627
  Serious: Yes (Hospitalization, Other)
  Sender: FDA-Public Use
  Company Number: US-ASTRAZENECA-2012SE84610

PATIENT
  Age: 70 Year
  Sex: Female
  Weight: 81.6 kg

DRUGS (17)
  1. BRILINTA [Suspect]
     Indication: STENT PLACEMENT
     Route: 048
     Dates: start: 201206
  2. ASPIRIN [Suspect]
     Route: 065
  3. LISINOPRIL [Suspect]
     Route: 048
  4. METOPROLOL SUCCINATE [Suspect]
     Indication: DIABETES MELLITUS
     Route: 048
     Dates: start: 201203
  5. PREDNISONE [Suspect]
     Route: 065
  6. EFFIENT [Suspect]
     Route: 065
     Dates: start: 201203, end: 201208
  7. PLAVIX [Suspect]
     Route: 065
     Dates: end: 201203
  8. SIMVASTATIN [Concomitant]
     Indication: BLOOD CHOLESTEROL ABNORMAL
     Route: 048
  9. SIMVASTATIN [Concomitant]
     Indication: BLOOD PRESSURE ABNORMAL
     Route: 048
  10. METFORMIN [Concomitant]
     Indication: DIABETES MELLITUS
     Route: 048
     Dates: end: 201203
  11. ANAFRANIL [Concomitant]
     Indication: DEPRESSION
     Route: 048
     Dates: start: 1982
  12. ADDERALL [Concomitant]
     Indication: NARCOLEPSY
     Route: 048
     Dates: start: 1982
  13. CINNAMON [Concomitant]
     Indication: BLOOD GLUCOSE INCREASED
     Route: 048
     Dates: start: 2000
  14. GRAPE SEED EXTRACT [Concomitant]
     Indication: NUTRITIONAL SUPPORT
     Dosage: DAILY
     Route: 048
  15. ENALAPRIL [Concomitant]
  16. INSULIN [Concomitant]
  17. AMPHETAMINE SALTS [Concomitant]

REACTIONS (16)
  - Thyroid neoplasm [Unknown]
  - Hepatic neoplasm [Unknown]
  - Uterine disorder [Unknown]
  - Uterine leiomyoma [Unknown]
  - Intermittent claudication [Unknown]
  - Poor peripheral circulation [Unknown]
  - Weight decreased [Unknown]
  - Myocardial infarction [Unknown]
  - Dysphagia [Unknown]
  - Blood glucose increased [Unknown]
  - Dyspnoea [Unknown]
  - Rash [Unknown]
  - Limb injury [Unknown]
  - Dizziness [Unknown]
  - Melanocytic naevus [Unknown]
  - Skin discolouration [Unknown]
